FAERS Safety Report 4263377-6 (Version None)
Quarter: 2004Q1

REPORT INFORMATION
  Report Type: 
  Country: None (occurrence: None)
  Receive Date: 20040105
  Receipt Date: 20031230
  Transmission Date: 20041129
  Serious: Yes (Disabling)
  Sender: FDA-Public Use
  Company Number: WAES 0312USA02674

PATIENT
  Age: 66 Year
  Sex: Female
  Weight: 104 kg

DRUGS (6)
  1. ASCORBIC ACID [Concomitant]
     Route: 048
  2. ESTROGENS (UNSPECIFIED) [Concomitant]
     Indication: ARTIFICIAL MENOPAUSE
  3. ZETIA [Suspect]
     Indication: LOW DENSITY LIPOPROTEIN INCREASED
     Route: 048
     Dates: start: 20030605, end: 20031215
  4. MONOPRIL [Concomitant]
     Route: 048
  5. HYDROCHLOROTHIAZIDE [Concomitant]
     Route: 048
  6. VITAMIN B COMPLEX [Concomitant]

REACTIONS (1)
  - ALOPECIA [None]
